FAERS Safety Report 24971655 (Version 1)
Quarter: 2025Q1

REPORT INFORMATION
  Report Type: Spontaneous
  Country: IT (occurrence: IT)
  Receive Date: 20250214
  Receipt Date: 20250214
  Transmission Date: 20250409
  Serious: Yes (Other)
  Sender: KYOWA
  Company Number: IT-KYOWAKIRIN-2025KK002479

PATIENT

DRUGS (1)
  1. POTELIGEO [Suspect]
     Active Substance: MOGAMULIZUMAB-KPKC
     Indication: Cutaneous T-cell lymphoma stage III
     Dosage: 80MG (1MG/KG IV WEEKLY ON DAYS 1, 8, 15, AND 22 OF THE FIRST 28-DAY CYCLE, THEN INFUSIONS EVERY 2WEE
     Route: 042

REACTIONS (1)
  - Pemphigoid [Recovered/Resolved]

NARRATIVE: CASE EVENT DATE: 20220501
